FAERS Safety Report 11904659 (Version 1)
Quarter: 2016Q1

REPORT INFORMATION
  Report Type: Spontaneous
  Country: US (occurrence: US)
  Receive Date: 20160108
  Receipt Date: 20160108
  Transmission Date: 20160526
  Serious: No
  Sender: FDA-Public Use
  Company Number: US-ROCHE-1551945

PATIENT
  Age: 79 Year
  Sex: Female

DRUGS (1)
  1. RITUXAN [Suspect]
     Active Substance: RITUXIMAB
     Indication: SJOGREN^S SYNDROME
     Route: 042
     Dates: start: 20150310

REACTIONS (8)
  - Abdominal pain [Unknown]
  - Dizziness [Unknown]
  - Asthenia [Unknown]
  - Bedridden [Unknown]
  - Nausea [Unknown]
  - Feeding disorder [Not Recovered/Not Resolved]
  - Constipation [Unknown]
  - Gastric disorder [Unknown]

NARRATIVE: CASE EVENT DATE: 20150311
